FAERS Safety Report 8238043-2 (Version None)
Quarter: 2012Q1

REPORT INFORMATION
  Report Type: 
  Country: None (occurrence: None)
  Receive Date: 20120323
  Receipt Date: 20120309
  Transmission Date: 20120608
  Serious: Yes (Hospitalization)
  Sender: FDA-Public Use
  Company Number: 2012SP013533

PATIENT
  Age: 50 Year
  Sex: Female

DRUGS (1)
  1. BOCEPREVIR (SCH-503034) [Suspect]
     Indication: PRODUCT USED FOR UNKNOWN INDICATION
     Dosage: UNK;UNK

REACTIONS (1)
  - GASTROENTERITIS [None]
